FAERS Safety Report 21110790 (Version 1)
Quarter: 2022Q3

REPORT INFORMATION
  Report Type: Spontaneous
  Country: US (occurrence: None)
  Receive Date: 20220720
  Receipt Date: 20220720
  Transmission Date: 20221027
  Serious: No
  Sender: FDA-Public Use
  Company Number: None

PATIENT
  Age: 56 Year
  Sex: Female
  Weight: 78.75 kg

DRUGS (19)
  1. CITROMA MAGNESIUM CITRATE [Suspect]
     Active Substance: MAGNESIUM CITRATE
     Indication: Bowel preparation
     Dosage: OTHER QUANTITY : 1 BOTTLE;?
     Route: 048
  2. FONDAPARINUX [Concomitant]
     Active Substance: FONDAPARINUX
  3. XIFAXAN [Concomitant]
     Active Substance: RIFAXIMIN
  4. EZETIMIBE\SIMVASTATIN [Concomitant]
     Active Substance: EZETIMIBE\SIMVASTATIN
  5. VITAMIN D [Concomitant]
     Active Substance: VITAMIN D NOS
  6. LEXAPRO [Concomitant]
     Active Substance: ESCITALOPRAM OXALATE
  7. Albuterol (proair) [Concomitant]
  8. SYMBICORT [Concomitant]
     Active Substance: BUDESONIDE\FORMOTEROL FUMARATE DIHYDRATE
  9. ASMANEX [Concomitant]
     Active Substance: MOMETASONE FUROATE
  10. KLONOPIN [Concomitant]
     Active Substance: CLONAZEPAM
  11. AZITHROMYCIN [Concomitant]
     Active Substance: AZITHROMYCIN
  12. BENZONATATE [Concomitant]
     Active Substance: BENZONATATE
  13. CICLOPIROX [Concomitant]
     Active Substance: CICLOPIROX
  14. HYDROCORTISONE [Concomitant]
     Active Substance: HYDROCORTISONE
  15. MOXIFLOXACIN [Concomitant]
     Active Substance: MOXIFLOXACIN
  16. Vit C chewable [Concomitant]
  17. ZINC [Concomitant]
     Active Substance: ZINC
  18. Black elderberry [Concomitant]
  19. MAGBESIUM TABLETS [Concomitant]

REACTIONS (10)
  - Feeling abnormal [None]
  - Illness [None]
  - Vomiting [None]
  - Chills [None]
  - Feeling hot [None]
  - Rash [None]
  - Eye disorder [None]
  - Malaise [None]
  - Balance disorder [None]
  - Recalled product [None]

NARRATIVE: CASE EVENT DATE: 20220703
